FAERS Safety Report 11516991 (Version 1)
Quarter: 2015Q3

REPORT INFORMATION
  Report Type: Spontaneous
  Country: US (occurrence: None)
  Receive Date: 20150916
  Receipt Date: 20150916
  Transmission Date: 20151125
  Serious: No
  Sender: FDA-Public Use
  Company Number: None

PATIENT
  Age: 78 Year
  Sex: Male
  Weight: 59.88 kg

DRUGS (7)
  1. TURMERIC SUPPLEMENT [Concomitant]
  2. GABAPENTIN. [Concomitant]
     Active Substance: GABAPENTIN
  3. FLONASE [Concomitant]
     Active Substance: FLUTICASONE PROPIONATE
  4. GABAPENTIN. [Suspect]
     Active Substance: GABAPENTIN
     Indication: RESTLESS LEGS SYNDROME
     Dosage: HALF TO ONE PILL ?AT BEDTIME?TAKEN BY MOUTH
     Route: 048
  5. VB12 [Concomitant]
  6. CLONOZEPAM (GENERIC FOR KLONOPIN) [Concomitant]
     Active Substance: CLONAZEPAM
  7. VALERIAN/FOLICACID/MAGNESIUM MALATE SUPPLEMENT [Concomitant]

REACTIONS (2)
  - Osteopenia [None]
  - Osteoporosis [None]

NARRATIVE: CASE EVENT DATE: 20150901
